FAERS Safety Report 5880398-8 (Version None)
Quarter: 2008Q3

REPORT INFORMATION
  Report Type: 
  Country: None (occurrence: None)
  Receive Date: 20080912
  Receipt Date: 20080616
  Transmission Date: 20090109
  Serious: No
  Sender: FDA-Public Use
  Company Number: US-ABBOTT-08P-163-0436341-00

PATIENT
  Sex: Male
  Weight: 79.45 kg

DRUGS (15)
  1. HUMIRA [Suspect]
     Indication: RHEUMATOID ARTHRITIS
     Route: 058
     Dates: start: 20040924, end: 20050601
  2. HUMIRA [Suspect]
     Route: 058
     Dates: start: 20050702, end: 20050817
  3. HUMIRA [Suspect]
     Route: 058
     Dates: start: 20050801, end: 20071224
  4. HUMIRA [Suspect]
     Route: 058
     Dates: start: 20080107, end: 20080530
  5. HUMIRA [Suspect]
     Route: 050
     Dates: start: 20040927, end: 20080530
  6. METHOTREXATE [Concomitant]
     Indication: RHEUMATOID ARTHRITIS
     Route: 048
     Dates: start: 19980101, end: 20080102
  7. METHOTREXATE [Concomitant]
     Route: 048
  8. METHYLPREDNISOLONE ACETATE [Concomitant]
     Indication: RHEUMATOID ARTHRITIS
     Route: 030
     Dates: start: 20080108, end: 20080108
  9. VICODIN [Concomitant]
     Indication: PAIN MANAGEMENT
     Route: 048
     Dates: start: 20080121
  10. VICODIN [Concomitant]
     Dosage: 2 TABS BID UP TO QID
     Route: 048
  11. IBUPROFEN [Concomitant]
     Indication: PAIN MANAGEMENT
     Route: 048
     Dates: start: 20080123
  12. IBUPROFEN [Concomitant]
     Route: 048
  13. FOLIC ACID [Concomitant]
     Indication: VITAMIN SUPPLEMENTATION
     Route: 048
     Dates: end: 20080102
  14. VITAMIN TAB [Concomitant]
     Indication: VITAMIN SUPPLEMENTATION
     Route: 048
  15. PREDNISONE TAB [Concomitant]
     Indication: INFLAMMATION
     Route: 048
     Dates: start: 20080101

REACTIONS (10)
  - ARTHRALGIA [None]
  - DIVERTICULITIS [None]
  - DRUG INEFFECTIVE [None]
  - INFLAMMATION [None]
  - PAIN [None]
  - PARANASAL SINUS HYPERSECRETION [None]
  - PLEURAL FIBROSIS [None]
  - PRODUCTIVE COUGH [None]
  - RASH [None]
  - SUICIDAL IDEATION [None]
